FAERS Safety Report 14204775 (Version 1)
Quarter: 2017Q4

REPORT INFORMATION
  Report Type: Spontaneous
  Country: US (occurrence: US)
  Receive Date: 20171118
  Receipt Date: 20171118
  Transmission Date: 20180321
  Serious: No
  Sender: FDA-Public Use
  Company Number: None

PATIENT
  Sex: Female
  Weight: 63.45 kg

DRUGS (4)
  1. VITAFUSION WOMEN^S MULTIVITAMIN [Concomitant]
  2. XULANE [Concomitant]
     Active Substance: ETHINYL ESTRADIOL\NORELGESTROMIN
  3. METRONIDAZOLE 500MG [Suspect]
     Active Substance: METRONIDAZOLE
     Dosage: ?          QUANTITY:14 TABLET(S);?
     Route: 048
     Dates: start: 20171108, end: 20171115
  4. ALLEGRA [Concomitant]
     Active Substance: FEXOFENADINE HYDROCHLORIDE

REACTIONS (6)
  - Depression [None]
  - Dry mouth [None]
  - Anxiety [None]
  - Abdominal distension [None]
  - Nightmare [None]
  - Mood altered [None]

NARRATIVE: CASE EVENT DATE: 20171116
